FAERS Safety Report 23286319 (Version 1)
Quarter: 2023Q4

REPORT INFORMATION
  Report Type: Spontaneous
  Country: US (occurrence: US)
  Receive Date: 20231212
  Receipt Date: 20231212
  Transmission Date: 20240110
  Serious: Yes (Other)
  Sender: FDA-Public Use
  Company Number: US-AMGEN-USASP2023216769

PATIENT
  Sex: Female

DRUGS (1)
  1. PROCRIT [Suspect]
     Active Substance: ERYTHROPOIETIN
     Indication: Product used for unknown indication
     Dosage: 40000 INTERNATIONAL UNIT
     Route: 065

REACTIONS (6)
  - Renal failure [Unknown]
  - Renal injury [Unknown]
  - Anaemia [Unknown]
  - General physical condition abnormal [Unknown]
  - Fatigue [Unknown]
  - Product supply issue [Unknown]
